FAERS Safety Report 7968132-9 (Version None)
Quarter: 2011Q4

REPORT INFORMATION
  Report Type: 
  Country: None (occurrence: None)
  Receive Date: 20111209
  Receipt Date: 20111125
  Transmission Date: 20120403
  Serious: Yes (Other)
  Sender: FDA-Public Use
  Company Number: PHHY2011DE103852

PATIENT

DRUGS (1)
  1. DEFERASIROX [Suspect]
     Indication: ANAEMIA

REACTIONS (1)
  - MYOCARDIAL INFARCTION [None]
